FAERS Safety Report 12764811 (Version 1)
Quarter: 2016Q3

REPORT INFORMATION
  Report Type: Report from Study
  Country: FR (occurrence: FR)
  Receive Date: 20160921
  Receipt Date: 20160921
  Transmission Date: 20161109
  Serious: Yes (Hospitalization)
  Sender: FDA-Public Use
  Company Number: FR-ROCHE-1637659

PATIENT
  Age: 58 Year
  Sex: Female
  Weight: 49.4 kg

DRUGS (23)
  1. LASILIX [Concomitant]
     Active Substance: FUROSEMIDE
     Indication: HYPERTENSION
     Route: 048
     Dates: start: 20141008
  2. DIFFU K [Concomitant]
     Active Substance: POTASSIUM CHLORIDE
     Indication: HYPOKALAEMIA
     Route: 048
     Dates: start: 20150629
  3. BIRODOGYL [Concomitant]
     Active Substance: METRONIDAZOLE\SPIRAMYCIN
     Indication: FACE OEDEMA
     Route: 048
     Dates: start: 20151103, end: 20151108
  4. BICARBONATE [Concomitant]
     Active Substance: BICARBONATE ION
     Indication: FACE OEDEMA
     Route: 048
     Dates: start: 20151103
  5. ATEZOLIZUMAB [Suspect]
     Active Substance: ATEZOLIZUMAB
     Indication: BLADDER TRANSITIONAL CELL CARCINOMA METASTATIC
     Dosage: MOST RECENT DOSE WAS GIVEN ON 10/AUG/2015 AND 03/NOV/2015
     Route: 042
     Dates: start: 20150629
  6. PAROEX [Concomitant]
     Active Substance: CHLORHEXIDINE GLUCONATE
     Indication: MUCOSAL INFLAMMATION
     Route: 061
     Dates: start: 20150629
  7. BETADINE [Concomitant]
     Active Substance: POVIDONE-IODINE
     Indication: WOUND
     Route: 061
     Dates: start: 20150702, end: 20150806
  8. FUNGIZONE [Concomitant]
     Active Substance: AMPHOTERICIN B
     Indication: FACE OEDEMA
     Route: 048
     Dates: start: 20151103
  9. ZOMETA [Concomitant]
     Active Substance: ZOLEDRONIC ACID
     Indication: HYPERCALCAEMIA
     Route: 042
     Dates: start: 20151126, end: 20151126
  10. FORADIL [Concomitant]
     Active Substance: FORMOTEROL FUMARATE
     Indication: HYPERSENSITIVITY
     Route: 055
     Dates: start: 2005
  11. DEXERYL (FRANCE) [Concomitant]
     Active Substance: GLYCERIN\PARAFFIN
     Dosage: INDICATION: DEHYDRATION SKIN
     Route: 061
     Dates: start: 20150629
  12. BIATAIN [Concomitant]
     Indication: WOUND
     Route: 061
     Dates: start: 20150702
  13. LERCANIDIPINE [Concomitant]
     Active Substance: LERCANIDIPINE
     Indication: HYPERTENSION
     Route: 048
     Dates: start: 2010
  14. XYLOCAINE [Concomitant]
     Active Substance: LIDOCAINE HYDROCHLORIDE
     Indication: FACE OEDEMA
     Route: 048
     Dates: start: 20151103
  15. PYOSTACINE [Concomitant]
     Active Substance: PRISTINAMYCIN
     Indication: WOUND
     Route: 048
     Dates: start: 20150702, end: 20150806
  16. ASPEGIC [Concomitant]
     Active Substance: ASPIRIN DL-LYSINE
     Indication: FACE OEDEMA
     Route: 048
     Dates: start: 20151103
  17. MIFLASONE [Concomitant]
     Active Substance: BECLOMETHASONE DIPROPIONATE
     Indication: HYPERSENSITIVITY
     Route: 055
     Dates: start: 2005
  18. NASONEX [Concomitant]
     Active Substance: MOMETASONE FUROATE
     Indication: SINUSITIS
     Route: 045
     Dates: start: 20150609
  19. OLMETEC [Concomitant]
     Active Substance: OLMESARTAN MEDOXOMIL
     Indication: HYPERTENSION
     Route: 048
     Dates: start: 2010
  20. CLIMASTON [Concomitant]
     Active Substance: ESTRADIOL\PROGESTERONE
     Dosage: INDICATION: MENOPAUSAL TREATMENT
     Route: 048
     Dates: start: 1995
  21. FUCIDINE [Concomitant]
     Active Substance: FUSIDIC ACID
     Indication: WOUND
     Route: 061
     Dates: start: 20150702, end: 20150806
  22. IMODIUM [Concomitant]
     Active Substance: LOPERAMIDE HYDROCHLORIDE
     Indication: DIARRHOEA
     Route: 048
     Dates: start: 20150629
  23. AERIUS [Concomitant]
     Active Substance: DESLORATADINE
     Indication: HYPERSENSITIVITY
     Route: 048
     Dates: start: 2000

REACTIONS (2)
  - Pelvic pain [Not Recovered/Not Resolved]
  - Arthritis [Recovered/Resolved]

NARRATIVE: CASE EVENT DATE: 20150811
